FAERS Safety Report 7558062-9 (Version None)
Quarter: 2011Q2

REPORT INFORMATION
  Report Type: 
  Country: None (occurrence: None)
  Receive Date: 20110620
  Receipt Date: 20110609
  Transmission Date: 20111010
  Serious: Yes (Other)
  Sender: FDA-Public Use
  Company Number: DE-UCBSA-035166

PATIENT
  Sex: Female

DRUGS (3)
  1. VIMPAT [Suspect]
     Indication: PARTIAL SEIZURES
  2. VIMPAT [Suspect]
     Dosage: UP-TITRATION
  3. LAMOTRIGINE [Concomitant]
     Indication: PARTIAL SEIZURES

REACTIONS (1)
  - CONVULSION [None]
